FAERS Safety Report 11246528 (Version 1)
Quarter: 2015Q3

REPORT INFORMATION
  Report Type: Spontaneous
  Country: US (occurrence: None)
  Receive Date: 20150706
  Receipt Date: 20150706
  Transmission Date: 20151125
  Serious: No
  Sender: FDA-Public Use
  Company Number: None

PATIENT

DRUGS (2)
  1. DICLOXACILLIN SODIUM DICLOXACILLIN [Suspect]
     Active Substance: DICLOXACILLIN SODIUM
  2. NAFCILLIN [Suspect]
     Active Substance: NAFCILLIN\NAFCILLIN SODIUM

REACTIONS (1)
  - Intercepted drug prescribing error [None]
